FAERS Safety Report 4783648-4 (Version None)
Quarter: 2005Q3

REPORT INFORMATION
  Report Type: 
  Country: None (occurrence: None)
  Receive Date: 20050927
  Receipt Date: 20050531
  Transmission Date: 20060218
  Serious: No
  Sender: FDA-Public Use
  Company Number: USA050393381

PATIENT
  Age: 69 Year
  Sex: Female

DRUGS (7)
  1. STRATTERA [Suspect]
     Dosage: 80 MG/1 DAY
  2. NEXIUM [Concomitant]
  3. MOBIC [Concomitant]
  4. CYTOTEC [Concomitant]
  5. THYROID TAB [Concomitant]
  6. DITROPAN XL [Concomitant]
  7. ATACAND [Concomitant]

REACTIONS (8)
  - ABNORMAL BEHAVIOUR [None]
  - DRUG INEFFECTIVE [None]
  - DRY MOUTH [None]
  - MOOD SWINGS [None]
  - PARAESTHESIA [None]
  - RASH [None]
  - SUICIDAL IDEATION [None]
  - THINKING ABNORMAL [None]
